FAERS Safety Report 14604072 (Version 1)
Quarter: 2018Q1

REPORT INFORMATION
  Report Type: Spontaneous
  Country: RU (occurrence: RU)
  Receive Date: 20180306
  Receipt Date: 20180306
  Transmission Date: 20180509
  Serious: Yes (Hospitalization)
  Sender: FDA-Public Use
  Company Number: RU-ASTRAZENECA-2017SE23665

PATIENT
  Age: 58 Year
  Sex: Male
  Weight: 92 kg

DRUGS (5)
  1. BRILINTA [Suspect]
     Active Substance: TICAGRELOR
     Indication: ANGINA PECTORIS
     Route: 048
     Dates: start: 20170109
  2. SYDNOPHARM [Concomitant]
  3. ASPIRIN CARDIO [Concomitant]
     Active Substance: ASPIRIN
  4. RENIPRIL [Concomitant]
  5. TRIMETAZIDINE [Concomitant]
     Active Substance: TRIMETAZIDINE

REACTIONS (3)
  - Vascular stent thrombosis [Recovered/Resolved]
  - Contusion [Not Recovered/Not Resolved]
  - Angina unstable [Recovered/Resolved]

NARRATIVE: CASE EVENT DATE: 2017
